FAERS Safety Report 17795060 (Version 2)
Quarter: 2020Q3

REPORT INFORMATION
  Report Type: Spontaneous
  Country: ES (occurrence: ES)
  Receive Date: 20200515
  Receipt Date: 20200719
  Transmission Date: 20201102
  Serious: Yes (Hospitalization, Other)
  Sender: FDA-Public Use
  Company Number: NVSC2020ES131915

PATIENT
  Age: 73 Year
  Sex: Male

DRUGS (8)
  1. PREDNISONE. [Interacting]
     Active Substance: PREDNISONE
     Indication: IMMUNOSUPPRESSANT DRUG THERAPY
  2. TACROLIMUS. [Interacting]
     Active Substance: TACROLIMUS
     Indication: RENAL TRANSPLANT
     Dosage: DOSE REDUCED
     Route: 065
     Dates: start: 202003
  3. LOPINAVIR,RITONAVIR [Interacting]
     Active Substance: LOPINAVIR\RITONAVIR
     Indication: COVID-19
     Dosage: 200/100 MG
     Route: 048
     Dates: start: 202003, end: 202003
  4. MYCOPHENOLIC ACID. [Interacting]
     Active Substance: MYCOPHENOLIC ACID
     Indication: RENAL TRANSPLANT
     Dosage: UNK
     Route: 065
  5. MYCOPHENOLIC ACID. [Interacting]
     Active Substance: MYCOPHENOLIC ACID
     Indication: IMMUNOSUPPRESSANT DRUG THERAPY
  6. HYDROXYCHLOROQUINE [Concomitant]
     Active Substance: HYDROXYCHLOROQUINE
     Indication: COVID-19
     Dosage: FIRST 24 HOURS
     Route: 048
     Dates: start: 202003, end: 202003
  7. PREDNISONE. [Suspect]
     Active Substance: PREDNISONE
     Indication: RENAL TRANSPLANT
     Dosage: UNK
     Route: 065
  8. TACROLIMUS. [Interacting]
     Active Substance: TACROLIMUS
     Indication: IMMUNOSUPPRESSANT DRUG THERAPY

REACTIONS (6)
  - COVID-19 [Unknown]
  - Drug level abnormal [Unknown]
  - Off label use [Unknown]
  - Product use in unapproved indication [Unknown]
  - Myocarditis [Unknown]
  - Drug interaction [Unknown]

NARRATIVE: CASE EVENT DATE: 202003
